FAERS Safety Report 6680280-2 (Version None)
Quarter: 2010Q2

REPORT INFORMATION
  Report Type: 
  Country: None (occurrence: None)
  Receive Date: 20100413
  Receipt Date: 20100408
  Transmission Date: 20101027
  Serious: Yes (Disabling, Other)
  Sender: FDA-Public Use
  Company Number: US-MERCK-0911USA00164

PATIENT
  Age: 59 Year
  Sex: Female
  Weight: 94 kg

DRUGS (8)
  1. FOSAMAX [Suspect]
     Indication: OSTEOPENIA
     Route: 048
     Dates: start: 19990422, end: 20010321
  2. FOSAMAX [Suspect]
     Route: 048
     Dates: start: 20010322, end: 20020101
  3. FOSAMAX [Suspect]
     Route: 048
     Dates: start: 20081001, end: 20081001
  4. FOSAMAX [Suspect]
     Route: 048
     Dates: start: 20020501, end: 20071022
  5. FOSAMAX [Suspect]
     Indication: OSTEOPOROSIS
     Route: 048
     Dates: start: 19990422, end: 20010321
  6. FOSAMAX [Suspect]
     Route: 048
     Dates: start: 20010322, end: 20020101
  7. FOSAMAX [Suspect]
     Route: 048
     Dates: start: 20081001, end: 20081001
  8. FOSAMAX [Suspect]
     Route: 048
     Dates: start: 20020501, end: 20071022

REACTIONS (28)
  - ARTHROPATHY [None]
  - ASTHMA [None]
  - ATROPHIC VULVOVAGINITIS [None]
  - BACK PAIN [None]
  - BONE DISORDER [None]
  - BREAST CANCER [None]
  - BREAST PAIN [None]
  - BREAST TENDERNESS [None]
  - CARPAL TUNNEL SYNDROME [None]
  - CERVICOBRACHIAL SYNDROME [None]
  - COUGH [None]
  - DIPLOPIA [None]
  - DRUG HYPERSENSITIVITY [None]
  - DYSPHAGIA [None]
  - EXOSTOSIS [None]
  - FEMUR FRACTURE [None]
  - GOITRE [None]
  - HYPERKERATOSIS [None]
  - HYPERVITAMINOSIS [None]
  - INCREASED TENDENCY TO BRUISE [None]
  - LATEX ALLERGY [None]
  - LOW TURNOVER OSTEOPATHY [None]
  - LOWER LIMB FRACTURE [None]
  - LUMBAR RADICULOPATHY [None]
  - OSTEOMYELITIS [None]
  - SPINAL OSTEOARTHRITIS [None]
  - STRESS URINARY INCONTINENCE [None]
  - THYROID NEOPLASM [None]
